FAERS Safety Report 9743549 (Version 1)
Quarter: 2013Q4

REPORT INFORMATION
  Report Type: Spontaneous
  Country: DE (occurrence: DE)
  Receive Date: 20131210
  Receipt Date: 20131210
  Transmission Date: 20140711
  Serious: Yes (Hospitalization)
  Sender: FDA-Public Use
  Company Number: DE-TEVA-448486GER

PATIENT
  Age: 74 Year
  Sex: Female

DRUGS (17)
  1. CLOZAPIN [Suspect]
     Dosage: 12.5 MILLIGRAM DAILY;
     Route: 048
     Dates: start: 20121120, end: 20121126
  2. CLOZAPIN [Suspect]
     Dosage: 25 MILLIGRAM DAILY;
     Route: 048
     Dates: start: 20121127, end: 20121129
  3. CLOZAPIN [Suspect]
     Dosage: 37.5 MILLIGRAM DAILY;
     Route: 048
     Dates: start: 20121130, end: 20121205
  4. CLOZAPIN [Suspect]
     Dosage: 50 MILLIGRAM DAILY;
     Route: 048
     Dates: start: 20121206, end: 20121210
  5. CLOZAPIN [Suspect]
     Dosage: 75 MILLIGRAM DAILY;
     Route: 048
     Dates: start: 20121211, end: 20121212
  6. CLOZAPIN [Suspect]
     Dosage: 50 MILLIGRAM DAILY;
     Route: 048
     Dates: start: 20121213, end: 20121221
  7. RISPERDAL [Concomitant]
     Dosage: 4 MILLIGRAM DAILY;
     Route: 048
     Dates: start: 20121025, end: 20121205
  8. RISPERDAL [Concomitant]
     Dosage: 3 MILLIGRAM DAILY;
     Route: 048
     Dates: start: 20121206, end: 20121210
  9. RISPERDAL [Concomitant]
     Dosage: 2 MILLIGRAM DAILY;
     Route: 048
     Dates: start: 20121211, end: 20121221
  10. RISPERDAL [Concomitant]
     Dosage: 3 MILLIGRAM DAILY;
     Route: 048
     Dates: start: 20121222, end: 20121223
  11. RISPERDAL [Concomitant]
     Dosage: 4 MILLIGRAM DAILY;
     Route: 048
     Dates: start: 20121224, end: 20121225
  12. RISPERDAL [Concomitant]
     Dosage: 5 MILLIGRAM DAILY;
     Route: 048
     Dates: start: 20121226, end: 20121227
  13. RISPERDAL [Concomitant]
     Dosage: 6 MILLIGRAM DAILY;
     Route: 048
     Dates: start: 20121228
  14. SERTRALINE [Concomitant]
     Dosage: 50 MILLIGRAM DAILY;
     Route: 048
     Dates: start: 20121025
  15. RAMIPRIL [Concomitant]
     Dosage: 5 MILLIGRAM DAILY;
     Route: 048
     Dates: start: 20121025, end: 20121122
  16. RAMIPRIL [Concomitant]
     Dosage: 7.5 MILLIGRAM DAILY;
     Route: 048
     Dates: start: 20121123, end: 20121203
  17. RAMIPRIL [Concomitant]
     Dosage: 10 MILLIGRAM DAILY;
     Route: 048
     Dates: start: 20121204

REACTIONS (9)
  - Drug hypersensitivity [Recovered/Resolved]
  - Diarrhoea [Recovered/Resolved]
  - Pyrexia [Recovered/Resolved]
  - Eosinophilia [Recovered/Resolved]
  - Pleural effusion [Recovered/Resolved]
  - Pericardial effusion [Recovered/Resolved]
  - Lymphadenopathy [Recovered/Resolved]
  - Polyserositis [Recovered/Resolved]
  - Abdominal mass [Recovered/Resolved]
